FAERS Safety Report 21972566 (Version 1)
Quarter: 2023Q1

REPORT INFORMATION
  Report Type: Spontaneous
  Country: US (occurrence: None)
  Receive Date: 20230208
  Receipt Date: 20230208
  Transmission Date: 20230418
  Serious: Yes (Other)
  Sender: FDA-Public Use
  Company Number: None

PATIENT

DRUGS (2)
  1. VALTOCO [Suspect]
     Active Substance: DIAZEPAM
     Dosage: FREQUENCY : AS NEEDED;?
     Route: 045
  2. NAYZILAM [Suspect]
     Active Substance: MIDAZOLAM
     Dosage: FREQUENCY : AS NEEDED;?
     Route: 045

REACTIONS (2)
  - Product packaging confusion [None]
  - Product dosage form confusion [None]
